FAERS Safety Report 21236356 (Version 2)
Quarter: 2022Q4

REPORT INFORMATION
  Report Type: Spontaneous
  Country: FR (occurrence: FR)
  Receive Date: 20220822
  Receipt Date: 20221007
  Transmission Date: 20230113
  Serious: Yes (Other)
  Sender: FDA-Public Use
  Company Number: None

PATIENT
  Age: 74 Year
  Sex: Male
  Weight: 81 kg

DRUGS (20)
  1. METFORMIN HYDROCHLORIDE [Suspect]
     Active Substance: METFORMIN HYDROCHLORIDE
     Indication: Insulin-requiring type 2 diabetes mellitus
     Dosage: FORM STRENGTH : 1000 MG ,UNIT DOSE : 2000 MG , FREQUENCY TIME : 1 DAY  ,THERAPY START DATE : ASKU
     Dates: end: 20220228
  2. PERINDOPRIL [Suspect]
     Active Substance: PERINDOPRIL
     Indication: Cardiovascular disorder
     Dosage: UNIT DOSE : 8 MG , FREQUENCY TIME : 1 DAY  , THERAPY START DATE : ASKU
     Dates: end: 20220227
  3. TICAGRELOR [Suspect]
     Active Substance: TICAGRELOR
     Indication: Anticoagulant therapy
     Dosage: FORM STRENGTH : 180 MG  , UNIT DOSE : 1 DAY  , FREQUENCY TIME : 2 DAY
     Dates: start: 20220225, end: 20220227
  4. XARELTO [Suspect]
     Active Substance: RIVAROXABAN
     Indication: Product used for unknown indication
     Dosage: FORM STRENGTH: 20 MG  , UNIT DOSE : 20 MG , FREQUENCY TIME :  1 DAY ,THERAPY  END DATE : NASK
     Dates: start: 20220227
  5. ATORVASTATIN CALCIUM [Suspect]
     Active Substance: ATORVASTATIN CALCIUM
     Indication: Dyslipidaemia
     Dosage: FORM STRENGTH : 40 MG , UNIT DOSE : 80 MG , FREQUENCY TIME : 1 DAY ,THERAPY START DATE : ASKU
     Dates: end: 20220227
  6. AMIODARONE [Suspect]
     Active Substance: AMIODARONE
     Indication: Product used for unknown indication
     Dosage: FORM STRENGTH : 200 MG, SCORED TABLET, UNIT DOSE :800 MG   , FREQUENCY TIME : 1 DAY ,  THERAPY  END
     Dates: start: 20220227
  7. HEPARIN SODIUM [Suspect]
     Active Substance: HEPARIN SODIUM
     Indication: Thrombosis prophylaxis
     Dosage: FORM STRENGTH :  5000 IU/ML, SOLUTION FOR IV INJECTION, UNIT DOSE : 24000 IU , FREQUENCY TIME :  1 D
     Dates: start: 20220225, end: 20220227
  8. GLICLAZIDE [Suspect]
     Active Substance: GLICLAZIDE
     Indication: Insulin-requiring type 2 diabetes mellitus
     Dosage: FORM STRENGTH : 60 MG ,  MODIFIED RELEASE SCORED TABLET, UNIT DOSE :60 MG  , FREQUENCY TIME :1 DAY ,
     Dates: end: 20220228
  9. IOMERON [Suspect]
     Active Substance: IOMEPROL
     Indication: Scan with contrast
     Dosage: 350 (350 MG IODINE/ML), SOLUTION FOR INJECTION, UNIT DOSE : 182 ML , FREQUENCY TIME : 1 TOTAL   , DU
     Dates: start: 20220225, end: 20220225
  10. PLAVIX [Suspect]
     Active Substance: CLOPIDOGREL BISULFATE
     Indication: Product used for unknown indication
     Dosage: FORM STRENGTH :  300 MG , UNIT DOSE :300 MG  , FREQUENCY TIME : 1 DAY   , DURATION : 1 DAY
     Dates: start: 20220227, end: 20220228
  11. INDAPAMIDE [Suspect]
     Active Substance: INDAPAMIDE
     Indication: Cardiovascular disorder
     Dosage: FORM STRENGTH : 1.5 MG , PROLONGED-RELEASE FILM-COATED TABLET , UNIT DOSE : 1.5 MG  , FREQUENCY TIME
     Dates: end: 20220227
  12. LANSOPRAZOLE VIATRIS [Concomitant]
     Indication: Product used for unknown indication
     Dosage: FORM STRENGTH :  15 MG
  13. HUMALOG [Concomitant]
     Active Substance: INSULIN LISPRO
     Indication: Product used for unknown indication
  14. BECLOMETASONE TEVA [Concomitant]
     Indication: Product used for unknown indication
     Dosage: 250 MICROGRAMS/DOSE, SOLUTION FOR INHALATION IN PRESSURIZED BOTTLE
  15. KARDEGIC [Concomitant]
     Active Substance: ASPIRIN DL-LYSINE
     Indication: Product used for unknown indication
     Dosage: FORM STRENGTH : 75 MG, POWDER FOR ORAL SOLUTION IN SACHET-DOSE
  16. VILDAGLIPTIN [Concomitant]
     Active Substance: VILDAGLIPTIN
     Indication: Product used for unknown indication
     Dosage: FORM STRENGTH : 50MG
  17. DOLIPRANE [Concomitant]
     Active Substance: ACETAMINOPHEN
     Indication: Product used for unknown indication
  18. VENTOLIN [Concomitant]
     Active Substance: ALBUTEROL SULFATE
     Indication: Product used for unknown indication
  19. FOLIC ACID [Concomitant]
     Active Substance: FOLIC ACID
     Indication: Product used for unknown indication
     Dosage: ACIDE FOLIQUE ARROW ,FORM STRENGTH :  5 MG
  20. INSULIN GLARGINE [Concomitant]
     Active Substance: INSULIN GLARGINE
     Indication: Product used for unknown indication

REACTIONS (1)
  - Acute kidney injury [Recovered/Resolved]

NARRATIVE: CASE EVENT DATE: 20220227
